FAERS Safety Report 17506612 (Version 2)
Quarter: 2020Q3

REPORT INFORMATION
  Report Type: Spontaneous
  Country: US (occurrence: US)
  Receive Date: 20200306
  Receipt Date: 20200903
  Transmission Date: 20201102
  Serious: No
  Sender: FDA-Public Use
  Company Number: US-GLAXOSMITHKLINE-US2020032361

PATIENT
  Age: 52 Year
  Weight: 54 kg

DRUGS (4)
  1. RASAGILINE. [Concomitant]
     Active Substance: RASAGILINE
     Indication: PRODUCT USED FOR UNKNOWN INDICATION
     Dosage: UNK
  2. PRAMIPEXOLE. [Concomitant]
     Active Substance: PRAMIPEXOLE
     Indication: PRODUCT USED FOR UNKNOWN INDICATION
     Dosage: UNK
  3. HABITROL [Suspect]
     Active Substance: NICOTINE
     Indication: SMOKING CESSATION THERAPY
     Dosage: UNK
     Dates: start: 202002
  4. CARBIDOPA AND LEVODOPA [Concomitant]
     Active Substance: CARBIDOPA\LEVODOPA
     Indication: PRODUCT USED FOR UNKNOWN INDICATION
     Dosage: UNK

REACTIONS (2)
  - Drug ineffective [Unknown]
  - Nicotine dependence [Unknown]
